FAERS Safety Report 8850284 (Version 3)
Quarter: 2012Q4

REPORT INFORMATION
  Report Type: Report from Study
  Country: FR (occurrence: FR)
  Receive Date: 20121019
  Receipt Date: 20121212
  Transmission Date: 20130627
  Serious: Yes (Hospitalization, Other)
  Sender: FDA-Public Use
  Company Number: FR-PFIZER INC-2012250245

PATIENT
  Age: 77 Year
  Sex: Male
  Weight: 69 kg

DRUGS (4)
  1. TEMSIROLIMUS [Suspect]
     Dosage: 50 mg, cyclic, on days on days 2-8-15
     Route: 042
     Dates: start: 20120713, end: 20121004
  2. ARACYTINE [Concomitant]
     Dosage: 2000 mg/m2, cyclic, on days 2-3
     Route: 042
     Dates: start: 20120713
  3. RITUXIMAB [Concomitant]
     Dosage: 375 mg/m2, cyclic, on day 1
     Route: 042
     Dates: start: 20120712
  4. DEXAMETHASONE [Concomitant]
     Dosage: 40 mg per day, cyclic, on days 1-2-3-4
     Route: 042
     Dates: start: 20120712

REACTIONS (3)
  - Colonic fistula [Recovered/Resolved]
  - Peritonitis [Recovered/Resolved]
  - Sepsis [Recovered/Resolved]
